FAERS Safety Report 5223252-7 (Version None)
Quarter: 2007Q1

REPORT INFORMATION
  Report Type: 
  Country: None (occurrence: None)
  Receive Date: 20070124
  Receipt Date: 20070115
  Transmission Date: 20070707
  Serious: Yes (Other)
  Sender: FDA-Public Use
  Company Number: GXKR2007TH00812

PATIENT
  Age: 35 Year
  Sex: Female

DRUGS (2)
  1. DEXAMETHASONE [Suspect]
     Indication: MATERNAL THERAPY TO ENHANCE FOETAL LUNG MATURITY
  2. BRICANYL [Suspect]
     Indication: THREATENED LABOUR
     Dosage: 250 UG; 10 UG PER MINURE

REACTIONS (7)
  - ANEURYSM RUPTURED [None]
  - BRADYCARDIA FOETAL [None]
  - DRUG EXPOSURE DURING PREGNANCY [None]
  - DUCTUS ARTERIOSUS STENOSIS FOETAL [None]
  - FOETAL ARRHYTHMIA [None]
  - STILLBIRTH [None]
  - TACHYCARDIA FOETAL [None]
